FAERS Safety Report 21738888 (Version 1)
Quarter: 2022Q4

REPORT INFORMATION
  Report Type: Report from Study
  Country: US (occurrence: US)
  Receive Date: 20221216
  Receipt Date: 20221216
  Transmission Date: 20230113
  Serious: Yes (Hospitalization, Other)
  Sender: FDA-Public Use
  Company Number: US-UNITED THERAPEUTICS-UNT-2022-030397

PATIENT
  Sex: Female
  Weight: 112.52 kg

DRUGS (1)
  1. TREPROSTINIL SODIUM [Suspect]
     Active Substance: TREPROSTINIL SODIUM
     Indication: Pulmonary arterial hypertension
     Dosage: 0.004 ?G/KG, CONTINUING
     Route: 041

REACTIONS (2)
  - Peripheral swelling [Unknown]
  - Internal haemorrhage [Unknown]
